FAERS Safety Report 7292530-2 (Version None)
Quarter: 2011Q1

REPORT INFORMATION
  Report Type: 
  Country: None (occurrence: None)
  Receive Date: 20110215
  Receipt Date: 20090320
  Transmission Date: 20110831
  Serious: Yes (Other)
  Sender: FDA-Public Use
  Company Number: FR-RANBAXY-2009RR-23030

PATIENT
  Age: 17 Year
  Sex: Male

DRUGS (3)
  1. FLUOXETINE [Suspect]
     Indication: DEPRESSION
  2. DEXMETHYLPHENIDATE HCL [Suspect]
  3. BUPROPION HCL [Suspect]

REACTIONS (1)
  - GYNAECOMASTIA [None]
